FAERS Safety Report 6307390-3 (Version None)
Quarter: 2009Q3

REPORT INFORMATION
  Report Type: 
  Country: None (occurrence: None)
  Receive Date: 20090813
  Receipt Date: 20090804
  Transmission Date: 20100115
  Serious: Yes (Other)
  Sender: FDA-Public Use
  Company Number: TW-JNJFOC-20090802551

PATIENT
  Sex: Male

DRUGS (4)
  1. APOHALOPERIDOL [Suspect]
     Indication: SCHIZOPHRENIA
     Route: 048
  2. RISPERDAL [Suspect]
     Indication: SCHIZOPHRENIA
     Route: 048
  3. VALPROIC ACID [Suspect]
     Indication: EPILEPSY
     Route: 048
  4. DILANTIN [Suspect]
     Indication: EPILEPSY
     Route: 048

REACTIONS (4)
  - ASTHENIA [None]
  - BLOOD PRESSURE INCREASED [None]
  - FALL [None]
  - TREMOR [None]
